FAERS Safety Report 5895293-8 (Version None)
Quarter: 2008Q2

REPORT INFORMATION
  Report Type: 
  Country: None (occurrence: None)
  Receive Date: 20080625
  Receipt Date: 20080625
  Transmission Date: 20081010
  Serious: No
  Sender: FDA-Public Use
  Company Number: None

PATIENT
  Age: 20 Year
  Sex: Male
  Weight: 72.5755 kg

DRUGS (1)
  1. CLEAR EYES, CONTACT LENS 15ML BOTTLE CANNOT READ LABEL, PRINT TOO SMAL [Suspect]
     Indication: CORRECTIVE LENS USER
     Dosage: 4 DROPS EVERY HOUR OPHTHALMIC
     Route: 047
     Dates: start: 20070622, end: 20070623

REACTIONS (7)
  - CONTACT LENS COMPLICATION [None]
  - DRY EYE [None]
  - EYE IRRITATION [None]
  - EYE PAIN [None]
  - OCULAR HYPERAEMIA [None]
  - PHARMACEUTICAL PRODUCT COMPLAINT [None]
  - THERAPEUTIC RESPONSE UNEXPECTED [None]
